APPROVED DRUG PRODUCT: AZITHROMYCIN
Active Ingredient: AZITHROMYCIN
Strength: EQ 500MG BASE
Dosage Form/Route: TABLET;ORAL
Application: A065405 | Product #001 | TE Code: AB
Applicant: CHARTWELL RX SCIENCES LLC
Approved: Feb 11, 2008 | RLD: No | RS: No | Type: RX